FAERS Safety Report 6376455-2 (Version None)
Quarter: 2009Q3

REPORT INFORMATION
  Report Type: 
  Country: None (occurrence: None)
  Receive Date: 20090922
  Receipt Date: 20090922
  Transmission Date: 20100115
  Serious: Yes (Life-Threatening)
  Sender: FDA-Public Use
  Company Number: None

PATIENT
  Sex: Female
  Weight: 67 kg

DRUGS (12)
  1. OXALIPLATIN [Suspect]
     Indication: COLORECTAL CANCER METASTATIC
     Dosage: 110 MG Q 2 WEEKS IV  (3 DOSE)
     Route: 042
     Dates: start: 20090817, end: 20090917
  2. AVASTIN [Concomitant]
  3. MAGNESIUM [Concomitant]
  4. CALCIUM GLUCONATE [Concomitant]
  5. HYDROCHLOROTHIAZIDE [Concomitant]
  6. ASPIRIN [Concomitant]
  7. BENZAPRIL [Concomitant]
  8. METFORMIN HCL [Concomitant]
  9. AMLODIPINE [Concomitant]
  10. SIMVASTATIN [Concomitant]
  11. PRILOSEC [Concomitant]
  12. LYRICA [Concomitant]

REACTIONS (5)
  - BLADDER DISORDER [None]
  - CONVULSION [None]
  - CYANOSIS [None]
  - FEELING ABNORMAL [None]
  - OXYGEN SATURATION DECREASED [None]
